FAERS Safety Report 6188186-2 (Version None)
Quarter: 2009Q2

REPORT INFORMATION
  Report Type: 
  Country: None (occurrence: None)
  Receive Date: 20090513
  Receipt Date: 20090511
  Transmission Date: 20091009
  Serious: Yes (Death)
  Sender: FDA-Public Use
  Company Number: NO-EISAI INC.-E2020-04574-SPO-NO

PATIENT
  Sex: Male

DRUGS (4)
  1. ARICEPT [Suspect]
     Route: 048
  2. ALBYL-E [Interacting]
     Indication: DRUG USE FOR UNKNOWN INDICATION
     Route: 048
     Dates: end: 20090401
  3. TOLVON [Interacting]
     Indication: RESTLESSNESS
     Route: 048
     Dates: start: 20090407, end: 20090401
  4. ORFIRIL [Concomitant]
     Route: 048
     Dates: start: 20090408

REACTIONS (2)
  - CEREBRAL HAEMORRHAGE [None]
  - DRUG INTERACTION [None]
